FAERS Safety Report 7090352-9 (Version None)
Quarter: 2010Q4

REPORT INFORMATION
  Report Type: 
  Country: None (occurrence: None)
  Receive Date: 20101109
  Receipt Date: 20101029
  Transmission Date: 20110411
  Serious: Yes (Hospitalization)
  Sender: FDA-Public Use
  Company Number: BE-JNJFOC-20101100633

PATIENT
  Age: 33 Year
  Sex: Female
  Weight: 60 kg

DRUGS (6)
  1. IBUPROFEN [Suspect]
     Indication: PRODUCT USED FOR UNKNOWN INDICATION
     Route: 048
  2. COLCHICINE [Interacting]
     Indication: PRODUCT USED FOR UNKNOWN INDICATION
     Dosage: .33 MG/KG
     Route: 048
  3. DICLOFENAC SODIUM [Interacting]
     Indication: PRODUCT USED FOR UNKNOWN INDICATION
     Route: 048
  4. ATORVASTATIN [Interacting]
     Indication: PRODUCT USED FOR UNKNOWN INDICATION
     Route: 048
  5. FUROSEMIDE [Interacting]
     Indication: PRODUCT USED FOR UNKNOWN INDICATION
     Route: 048
  6. PROPOFOL [Interacting]
     Indication: SEDATIVE THERAPY
     Dosage: UP TO 200 MG/HOUR

REACTIONS (30)
  - ACUTE HEPATIC FAILURE [None]
  - ACUTE LUNG INJURY [None]
  - AMINO ACID LEVEL DECREASED [None]
  - BLOOD CULTURE POSITIVE [None]
  - BLOOD LACTIC ACID INCREASED [None]
  - BLOOD PYRUVIC ACID INCREASED [None]
  - BLOOD TRIGLYCERIDES INCREASED [None]
  - BRAIN OEDEMA [None]
  - CARDIAC ARREST [None]
  - CONTINUOUS HAEMODIAFILTRATION [None]
  - CONVULSION [None]
  - DRUG INTERACTION [None]
  - DRUG LEVEL DECREASED [None]
  - DRUG TOXICITY [None]
  - ENTEROCOLITIS [None]
  - ESCHERICHIA INFECTION [None]
  - HAEMORRHAGE [None]
  - HYPERAMMONAEMIC ENCEPHALOPATHY [None]
  - HYPERLIPIDAEMIA [None]
  - HYPERTRIGLYCERIDAEMIA [None]
  - HYPOXIA [None]
  - ILEUS [None]
  - MULTIPLE DRUG OVERDOSE INTENTIONAL [None]
  - PANCYTOPENIA [None]
  - PROPOFOL INFUSION SYNDROME [None]
  - PULMONARY ALVEOLAR HAEMORRHAGE [None]
  - RENAL FAILURE ACUTE [None]
  - RHABDOMYOLYSIS [None]
  - SHOCK HAEMORRHAGIC [None]
  - SMALL INTESTINAL HAEMORRHAGE [None]
